FAERS Safety Report 20607717 (Version 1)
Quarter: 2022Q1

REPORT INFORMATION
  Report Type: Spontaneous
  Country: DE (occurrence: DE)
  Receive Date: 20220317
  Receipt Date: 20220317
  Transmission Date: 20220423
  Serious: Yes (Other)
  Sender: FDA-Public Use
  Company Number: None

PATIENT
  Age: 25 Year
  Sex: Male
  Weight: 70 kg

DRUGS (1)
  1. FINASTERIDE [Suspect]
     Active Substance: FINASTERIDE
     Indication: Androgenetic alopecia
     Dosage: 1 MILLIGRAM, (1MG)
     Route: 048
     Dates: start: 20201014, end: 20201028

REACTIONS (9)
  - Erectile dysfunction [Not Recovered/Not Resolved]
  - Impaired quality of life [Not Recovered/Not Resolved]
  - Genital hypoaesthesia [Not Recovered/Not Resolved]
  - Fatigue [Not Recovered/Not Resolved]
  - Loss of libido [Not Recovered/Not Resolved]
  - Feeling abnormal [Not Recovered/Not Resolved]
  - Memory impairment [Not Recovered/Not Resolved]
  - Disturbance in attention [Not Recovered/Not Resolved]
  - Depression [Not Recovered/Not Resolved]

NARRATIVE: CASE EVENT DATE: 20201022
